FAERS Safety Report 25712214 (Version 1)
Quarter: 2025Q3

REPORT INFORMATION
  Report Type: Spontaneous
  Country: TW (occurrence: TW)
  Receive Date: 20250821
  Receipt Date: 20250821
  Transmission Date: 20251020
  Serious: Yes (Other)
  Sender: SANOFI AVENTIS
  Company Number: TW-SA-2025SA233479

PATIENT
  Age: 53 Year
  Sex: Female

DRUGS (5)
  1. DOCETAXEL [Suspect]
     Active Substance: DOCETAXEL
     Indication: Breast cancer stage III
     Dates: start: 20240322
  2. CARBOPLATIN [Suspect]
     Active Substance: CARBOPLATIN
     Indication: Breast cancer stage III
     Dates: start: 20240322
  3. TRASTUZUMAB [Suspect]
     Active Substance: TRASTUZUMAB
     Indication: Breast cancer stage III
     Dates: start: 20240322
  4. PERTUZUMAB [Suspect]
     Active Substance: PERTUZUMAB
     Indication: Breast cancer stage III
     Dates: start: 20240322
  5. VEMLIDY [Concomitant]
     Active Substance: TENOFOVIR ALAFENAMIDE FUMARATE
     Dosage: (25MG/TAB) 1 TAB QD
     Route: 048

REACTIONS (21)
  - Cardiopulmonary failure [Recovering/Resolving]
  - Dyspnoea [Recovering/Resolving]
  - Wheezing [Recovering/Resolving]
  - Toxicity to various agents [Recovering/Resolving]
  - Chest discomfort [Recovering/Resolving]
  - Palpitations [Recovering/Resolving]
  - Pain [Recovering/Resolving]
  - Sensory disturbance [Recovering/Resolving]
  - Speech disorder [Recovering/Resolving]
  - Hiccups [Recovering/Resolving]
  - Pyrexia [Recovering/Resolving]
  - Gastrointestinal disorder [Recovering/Resolving]
  - Diarrhoea [Recovering/Resolving]
  - Haemorrhoidal haemorrhage [Recovering/Resolving]
  - Haemorrhoids [Recovering/Resolving]
  - Tongue discomfort [Recovering/Resolving]
  - Taste disorder [Recovering/Resolving]
  - Dry mouth [Recovering/Resolving]
  - Hypoaesthesia [Recovering/Resolving]
  - Paraesthesia [Recovering/Resolving]
  - Hyperhidrosis [Recovering/Resolving]

NARRATIVE: CASE EVENT DATE: 20240301
